FAERS Safety Report 4927062-7 (Version None)
Quarter: 2006Q1

REPORT INFORMATION
  Report Type: 
  Country: None (occurrence: None)
  Receive Date: 20060228
  Receipt Date: 20051014
  Transmission Date: 20060701
  Serious: No
  Sender: FDA-Public Use
  Company Number: US-GLAXOSMITHKLINE-A0578298A

PATIENT
  Age: 54 Year
  Sex: Female

DRUGS (7)
  1. LAMICTAL [Suspect]
     Indication: BIPOLAR DISORDER
     Dosage: 300MG PER DAY
     Route: 048
     Dates: start: 20050401
  2. PROVIGIL [Suspect]
  3. TRICOR [Concomitant]
  4. WELCHOL [Concomitant]
  5. MAXALT [Concomitant]
  6. TEMAZEPAM [Concomitant]
  7. COPAXONE [Concomitant]

REACTIONS (3)
  - ERYTHEMA [None]
  - HYPOAESTHESIA [None]
  - PRURITUS [None]
